FAERS Safety Report 9441482 (Version 1)
Quarter: 2013Q3

REPORT INFORMATION
  Report Type: Spontaneous
  Country: FR (occurrence: FR)
  Receive Date: 20130805
  Receipt Date: 20130805
  Transmission Date: 20140515
  Serious: Yes (Hospitalization, Other)
  Sender: FDA-Public Use
  Company Number: FR-PFIZER INC-2013224462

PATIENT
  Age: 67 Year
  Sex: Female

DRUGS (5)
  1. TRIATEC [Suspect]
     Indication: HYPERTENSION
     Dosage: 25. MG, DAILY
     Route: 048
  2. TENSTATEN [Suspect]
     Indication: HYPERTENSION
     Dosage: 50 MG, DAILY
     Route: 048
     Dates: end: 20130610
  3. GLUCOPHAGE [Suspect]
     Indication: TYPE 2 DIABETES MELLITUS
     Dosage: 500 MG, DAILY
     Route: 048
  4. GLUCOPHAGE [Suspect]
     Dosage: 500 MG, DAILY
     Route: 048
     Dates: start: 201306
  5. POTASSIUM CHLORIDE [Suspect]
     Indication: HYPOKALAEMIA
     Dosage: UNK, EVERY OTHER DAY
     Route: 048

REACTIONS (7)
  - Hypokalaemia [Recovered/Resolved]
  - Escherichia infection [Unknown]
  - Asthenia [Unknown]
  - Decreased appetite [Unknown]
  - Hyponatraemia [Unknown]
  - Pyelonephritis [Unknown]
  - Inflammation [Unknown]
